FAERS Safety Report 7759096-1 (Version None)
Quarter: 2011Q3

REPORT INFORMATION
  Report Type: 
  Country: None (occurrence: None)
  Receive Date: 20110919
  Receipt Date: 20110914
  Transmission Date: 20111222
  Serious: Yes (Other)
  Sender: FDA-Public Use
  Company Number: US-SANOFI-AVENTIS-2011SA054207

PATIENT
  Age: 73 Year
  Sex: Male
  Weight: 68.1 kg

DRUGS (13)
  1. HYDRALAZINE HCL [Concomitant]
  2. CARVEDILOL [Concomitant]
  3. MULTAQ [Suspect]
     Indication: ATRIAL FIBRILLATION
     Route: 048
     Dates: start: 20110606, end: 20110810
  4. ASPIRIN [Concomitant]
  5. NITROGLYCERIN [Concomitant]
     Route: 048
  6. ATORVASTATIN [Concomitant]
  7. COUMADIN [Concomitant]
     Dosage: AS INSTRUCTED
  8. HYDROCHLOROTHIAZIDE [Suspect]
     Route: 065
  9. PRASUGREL [Concomitant]
  10. LASIX [Suspect]
     Route: 048
  11. ALPRAZOLAM [Concomitant]
  12. FERROUS SULFATE TAB [Concomitant]
  13. POTASSIUM [Concomitant]

REACTIONS (1)
  - BLOOD CREATININE INCREASED [None]
